FAERS Safety Report 25466611 (Version 1)
Quarter: 2025Q2

REPORT INFORMATION
  Report Type: Spontaneous
  Country: US (occurrence: US)
  Receive Date: 20250623
  Receipt Date: 20250623
  Transmission Date: 20250716
  Serious: No
  Sender: ROCHE
  Company Number: US-ROCHE-10000313337

PATIENT
  Sex: Male

DRUGS (15)
  1. ACTEMRA ACTPEN [Suspect]
     Active Substance: TOCILIZUMAB
     Indication: Rheumatoid arthritis
     Dosage: STRENGTH: 162 MG/0.9 ML
     Route: 058
  2. CARVEDILOL [Concomitant]
     Active Substance: CARVEDILOL
  3. Chlorthalido Tab [Concomitant]
  4. Ezetimibe Tab [Concomitant]
  5. Lorsatan Pot Tab [Concomitant]
  6. PLAQUENIL [Concomitant]
     Active Substance: HYDROXYCHLOROQUINE SULFATE
  7. Amlodipine Tab [Concomitant]
  8. ATORVASTATIN [Concomitant]
     Active Substance: ATORVASTATIN
  9. Calamine Lot [Concomitant]
  10. Loratadine Tab [Concomitant]
  11. Melatonin Tab [Concomitant]
  12. Methyl pred PAK [Concomitant]
  13. Meto prol tar [Concomitant]
  14. Norco Tab [Concomitant]
  15. AMOXICILLIN CAP [Concomitant]

REACTIONS (3)
  - Pruritus [Not Recovered/Not Resolved]
  - Haemorrhage [Not Recovered/Not Resolved]
  - Blood pressure increased [Not Recovered/Not Resolved]
